FAERS Safety Report 20533104 (Version 1)
Quarter: 2022Q1

REPORT INFORMATION
  Report Type: Spontaneous
  Country: US (occurrence: US)
  Receive Date: 20220301
  Receipt Date: 20220301
  Transmission Date: 20220423
  Serious: No
  Sender: FDA-Public Use
  Company Number: US-TAKEDA-2022TUS013334

PATIENT
  Age: 64 Year
  Sex: Female
  Weight: 95 kg

DRUGS (1)
  1. GAMMAGARD LIQUID [Suspect]
     Active Substance: HUMAN IMMUNOGLOBULIN G
     Indication: Autoimmune disorder
     Route: 042

REACTIONS (2)
  - Poor venous access [Unknown]
  - Product use issue [Unknown]

NARRATIVE: CASE EVENT DATE: 20220224
